FAERS Safety Report 4923230-9 (Version None)
Quarter: 2006Q1

REPORT INFORMATION
  Report Type: 
  Country: None (occurrence: None)
  Receive Date: 20060127
  Receipt Date: 20051205
  Transmission Date: 20060701
  Serious: Yes (Other)
  Sender: FDA-Public Use
  Company Number: 2005164513

PATIENT
  Age: 65 Year
  Sex: Female
  Weight: 79.3795 kg

DRUGS (2)
  1. LYRICA [Suspect]
     Indication: POST HERPETIC NEURALGIA
     Dosage: 200 MG (100 MG 2 IN 1 D) ORAL
     Route: 048
     Dates: start: 20051101
  2. DARVOCET-N 100 [Concomitant]

REACTIONS (1)
  - DRUG EFFECT DECREASED [None]
